FAERS Safety Report 10541028 (Version 1)
Quarter: 2014Q4

REPORT INFORMATION
  Report Type: Spontaneous
  Country: US (occurrence: None)
  Receive Date: 20141022
  Receipt Date: 20141022
  Transmission Date: 20150529
  Serious: Yes (Hospitalization)
  Sender: FDA-Public Use
  Company Number: OTH-PAT-2014019

PATIENT
  Age: 82 Year

DRUGS (7)
  1. VITAMIN D3 [Concomitant]
     Active Substance: CHOLECALCIFEROL
  2. HYDROCODONE/PARACETAMOL (VICODIN, AND ENOXAPARINE (LOVENOX) [Concomitant]
  3. GABAPENTIN. [Concomitant]
     Active Substance: GABAPENTIN
  4. ZOLEDRONIC ACID (RECLAST) [Concomitant]
  5. RABEPRAZOLE SODIUM (ACIPHEX) [Concomitant]
  6. CYSTADANE [Suspect]
     Active Substance: BETAINE
     Dosage: EVERY DAY
     Dates: start: 20140721
  7. ENOXAPARINE [Concomitant]
     Active Substance: ENOXAPARIN

REACTIONS (3)
  - Blood urine present [None]
  - Gastric ulcer [None]
  - Haematochezia [None]

NARRATIVE: CASE EVENT DATE: 20141011
